FAERS Safety Report 16178707 (Version 1)
Quarter: 2019Q2

REPORT INFORMATION
  Report Type: Spontaneous
  Country: DE (occurrence: DE)
  Receive Date: 20190410
  Receipt Date: 20190410
  Transmission Date: 20190711
  Serious: No
  Sender: FDA-Public Use
  Company Number: DE-ALKEM LABORATORIES LIMITED-DE-ALKEM-2018-07407

PATIENT
  Age: 24 Year
  Sex: Female
  Weight: 70 kg

DRUGS (7)
  1. LORAZEPAM. [Suspect]
     Active Substance: LORAZEPAM
     Indication: PANIC DISORDER
     Dosage: 3 [MG/D ]/ 1-3 MG/D, IF REQUIRED, BUT DAILY
     Route: 048
  2. QUETIAPINE FUMARATE. [Suspect]
     Active Substance: QUETIAPINE FUMARATE
     Indication: RESTLESSNESS
     Dosage: 250 MG, OD (250 [MG/D ]/ 150MG RETARDED)
     Route: 048
     Dates: start: 20161115, end: 20170821
  3. FOLSAURE (NEM) [Concomitant]
     Indication: PROPHYLAXIS OF NEURAL TUBE DEFECT
     Dosage: UNKNOWN
     Route: 048
     Dates: start: 20161115, end: 20170713
  4. MISOPROSTOL. [Concomitant]
     Active Substance: MISOPROSTOL
     Indication: LABOUR INDUCTION
     Dosage: UNK
     Route: 048
  5. PROMETHAZINE [Suspect]
     Active Substance: PROMETHAZINE\PROMETHAZINE HYDROCHLORIDE
     Indication: SLEEP DISORDER
     Dosage: 50 MG, OD
     Route: 048
     Dates: start: 20161115, end: 20170821
  6. CYMBALTA [Suspect]
     Active Substance: DULOXETINE HYDROCHLORIDE
     Indication: DEPRESSION
     Dosage: 120 [MG/D ]/ VARYING DOSAGE 60-120 MG/D
     Route: 048
     Dates: start: 20161115, end: 20170821
  7. PREGABALIN. [Suspect]
     Active Substance: PREGABALIN
     Indication: ANXIETY DISORDER
     Dosage: 450 MG, OD (450 [MG/D ]/ THERAPY STOPPED IN WEEK 5, THERAPY RE-STARTED IN WEEK 34+3)
     Route: 048

REACTIONS (1)
  - Exposure during pregnancy [Unknown]
